FAERS Safety Report 13653324 (Version 1)
Quarter: 2017Q2

REPORT INFORMATION
  Report Type: Spontaneous
  Country: US (occurrence: US)
  Receive Date: 20170614
  Receipt Date: 20170614
  Transmission Date: 20170830
  Serious: No
  Sender: FDA-Public Use
  Company Number: US-ROCHE-1319417

PATIENT
  Sex: Female

DRUGS (11)
  1. PROTONIX [Concomitant]
     Active Substance: PANTOPRAZOLE SODIUM
  2. ASPIRIN. [Concomitant]
     Active Substance: ASPIRIN
  3. XELODA [Suspect]
     Active Substance: CAPECITABINE
     Indication: VOMITING
  4. XELODA [Suspect]
     Active Substance: CAPECITABINE
     Indication: NAUSEA
     Dosage: 14 DAYS ON 7 DAYS OFF
     Route: 048
     Dates: start: 20131123
  5. PHENERGAN [Concomitant]
     Active Substance: PROMETHAZINE HYDROCHLORIDE
  6. XELODA [Suspect]
     Active Substance: CAPECITABINE
     Indication: BREAST CANCER FEMALE
     Dosage: 14 DAYS ON 7 DAYS OFF
     Route: 048
     Dates: start: 20131123
  7. MORPHINE [Concomitant]
     Active Substance: MORPHINE
  8. VITAMIN B6 [Concomitant]
     Active Substance: PYRIDOXINE HYDROCHLORIDE
  9. LORTAB [Concomitant]
     Active Substance: ACETAMINOPHEN\HYDROCODONE BITARTRATE
  10. SENNA [Concomitant]
     Active Substance: SENNA LEAF\SENNOSIDES\SENNOSIDES A AND B
  11. LIDODERM [Concomitant]
     Active Substance: LIDOCAINE

REACTIONS (2)
  - Abdominal discomfort [Unknown]
  - Vomiting [Unknown]
